FAERS Safety Report 4860908-X (Version None)
Quarter: 2005Q4

REPORT INFORMATION
  Report Type: 
  Country: None (occurrence: None)
  Receive Date: 20051220
  Receipt Date: 20051215
  Transmission Date: 20060501
  Serious: Yes (Life-Threatening)
  Sender: FDA-Public Use
  Company Number: PHHO2005ES19515

PATIENT
  Age: 68 Year
  Sex: Male
  Weight: 87.5 kg

DRUGS (2)
  1. IRBESARTAN [Suspect]
     Indication: ESSENTIAL HYPERTENSION
     Dosage: CODE NOT BROKEN
     Route: 048
     Dates: start: 20050906, end: 20051215
  2. ESIDRIX [Suspect]
     Indication: ESSENTIAL HYPERTENSION
     Dosage: NOT REPORTED
     Route: 048
     Dates: end: 20051215

REACTIONS (1)
  - OEDEMA PERIPHERAL [None]
